FAERS Safety Report 9107440 (Version 2)
Quarter: 2013Q2

REPORT INFORMATION
  Report Type: Spontaneous
  Country: DE (occurrence: AU)
  Receive Date: 20130221
  Receipt Date: 20130422
  Transmission Date: 20140414
  Serious: Yes (Other)
  Sender: FDA-Public Use
  Company Number: 2013SP000524

PATIENT
  Age: 62 Year
  Sex: Male

DRUGS (2)
  1. OMNARIS NASAL SPRAY [Suspect]
     Indication: RHINITIS ALLERGIC
     Route: 045
     Dates: start: 201211, end: 20130102
  2. SEVIKAR [Concomitant]
     Indication: HYPERTENSION
     Dates: start: 201209, end: 20130102

REACTIONS (1)
  - Renal failure acute [Recovered/Resolved]
